FAERS Safety Report 16525941 (Version 1)
Quarter: 2019Q3

REPORT INFORMATION
  Report Type: Spontaneous
  Country: US (occurrence: US)
  Receive Date: 20190703
  Receipt Date: 20190703
  Transmission Date: 20191004
  Serious: Yes (Other)
  Sender: FDA-Public Use
  Company Number: US-JNJFOC-20190443588

PATIENT
  Age: 49 Year
  Sex: Male
  Weight: 81.72 kg

DRUGS (1)
  1. EUCALYPTOL, MENTHOL, METHYL SALICYLATE, AND THYMOL [Suspect]
     Active Substance: EUCALYPTOL\MENTHOL\METHYL SALICYLATE\THYMOL
     Indication: DENTAL DISORDER PROPHYLAXIS
     Dosage: MOUTHFUL FROM BOTTLE
     Route: 048

REACTIONS (4)
  - Cardiac valve disease [Unknown]
  - Inappropriate schedule of product administration [Unknown]
  - Wrong technique in product usage process [Unknown]
  - Oral mucosal exfoliation [Recovered/Resolved]
